FAERS Safety Report 13831806 (Version 1)
Quarter: 2017Q3

REPORT INFORMATION
  Report Type: Spontaneous
  Country: US (occurrence: US)
  Receive Date: 20170803
  Receipt Date: 20170803
  Transmission Date: 20171127
  Serious: No
  Sender: FDA-Public Use
  Company Number: US-ROCHE-692184

PATIENT
  Age: 70 Year
  Sex: Female
  Weight: 59 kg

DRUGS (1)
  1. BONIVA [Suspect]
     Active Substance: IBANDRONATE SODIUM
     Indication: OSTEOPOROSIS PROPHYLAXIS
     Route: 048

REACTIONS (9)
  - Influenza like illness [Not Recovered/Not Resolved]
  - Neck pain [Unknown]
  - Musculoskeletal pain [Not Recovered/Not Resolved]
  - Abdominal discomfort [Unknown]
  - Chest pain [Unknown]
  - Gait disturbance [Unknown]
  - Chills [Unknown]
  - Nervousness [Not Recovered/Not Resolved]
  - Back pain [Unknown]

NARRATIVE: CASE EVENT DATE: 20100130
